FAERS Safety Report 8300584-7 (Version None)
Quarter: 2012Q2

REPORT INFORMATION
  Report Type: 
  Country: None (occurrence: None)
  Receive Date: 20120420
  Receipt Date: 20120419
  Transmission Date: 20120825
  Serious: Yes (Life-Threatening, Hospitalization, Other)
  Sender: FDA-Public Use
  Company Number: CL-BAYER-2012-037929

PATIENT
  Age: 51 Year
  Sex: Female

DRUGS (1)
  1. ESTRADIOL VALERATE/DIENOGEST [Suspect]
     Dosage: UNK
     Route: 048
     Dates: start: 20110301, end: 20120301

REACTIONS (4)
  - ROAD TRAFFIC ACCIDENT [None]
  - HAEMORRHAGIC STROKE [None]
  - BRAIN OEDEMA [None]
  - CRANIOCEREBRAL INJURY [None]
